FAERS Safety Report 6465695-X (Version None)
Quarter: 2009Q4

REPORT INFORMATION
  Report Type: 
  Country: None (occurrence: None)
  Receive Date: 20091201
  Receipt Date: 20081105
  Transmission Date: 20100525
  Serious: No
  Sender: FDA-Public Use
  Company Number: US-AMGEN-KDL317640

PATIENT
  Sex: Female
  Weight: 74 kg

DRUGS (3)
  1. ENBREL [Suspect]
     Indication: RHEUMATOID ARTHRITIS
     Route: 058
     Dates: start: 20071201
  2. TYLENOL W/ CODEINE NO. 3 [Concomitant]
  3. THYROID TAB [Concomitant]

REACTIONS (3)
  - EAR PAIN [None]
  - RHEUMATOID ARTHRITIS [None]
  - SINUSITIS [None]
